FAERS Safety Report 12254017 (Version 1)
Quarter: 2016Q2

REPORT INFORMATION
  Report Type: Spontaneous
  Country: JP (occurrence: JP)
  Receive Date: 20160411
  Receipt Date: 20160411
  Transmission Date: 20160815
  Serious: Yes (Other)
  Sender: FDA-Public Use
  Company Number: JP-PFIZER INC-2016184674

PATIENT
  Age: 81 Year
  Sex: Male
  Weight: 54 kg

DRUGS (3)
  1. VASOLAN /00014302/ [Interacting]
     Active Substance: VERAPAMIL HYDROCHLORIDE
     Route: 048
  2. DIOVAN [Concomitant]
     Active Substance: VALSARTAN
     Route: 048
  3. SUNITINIB MALATE. [Suspect]
     Active Substance: SUNITINIB MALATE
     Indication: METASTATIC RENAL CELL CARCINOMA
     Dosage: 50 MG, DAILY, 2 WEEK-ON AND 1-WEEK OFF SCHEDULE
     Route: 048

REACTIONS (2)
  - Drug interaction [Recovering/Resolving]
  - Platelet count decreased [Recovering/Resolving]
